FAERS Safety Report 17856462 (Version 1)
Quarter: 2020Q2

REPORT INFORMATION
  Report Type: Spontaneous
  Country: US (occurrence: US)
  Receive Date: 20200603
  Receipt Date: 20200603
  Transmission Date: 20200714
  Serious: No
  Sender: FDA-Public Use
  Company Number: US-IGSA-SR10010385

PATIENT
  Age: 38 Year
  Sex: Female

DRUGS (10)
  1. BENADRYL [Concomitant]
     Active Substance: DIPHENHYDRAMINE HYDROCHLORIDE
  2. PREDNISONE                         /00044702/ [Concomitant]
     Active Substance: PREDNISONE
  3. TAVALISSE [Suspect]
     Active Substance: FOSTAMATINIB
     Indication: THROMBOCYTOPENIA
  4. DECADRON [Concomitant]
     Active Substance: DEXAMETHASONE
  5. PROMACTA [Concomitant]
     Active Substance: ELTROMBOPAG OLAMINE
  6. TYLENOL [Concomitant]
     Active Substance: ACETAMINOPHEN
  7. ZOFRAN [Concomitant]
     Active Substance: ONDANSETRON HYDROCHLORIDE
  8. GAMUNEX [Concomitant]
     Active Substance: HUMAN IMMUNOGLOBULIN G
  9. TAVALISSE [Suspect]
     Active Substance: FOSTAMATINIB
     Indication: IMMUNE THROMBOCYTOPENIA
     Dosage: 150 MG, BID
     Route: 048
     Dates: start: 20181114
  10. HUMAN NORMAL IMMUNOGLOBULIN (IV) [Suspect]
     Active Substance: HUMAN IMMUNOGLOBULIN G
     Indication: PRODUCT USED FOR UNKNOWN INDICATION
     Dosage: UNK

REACTIONS (1)
  - Allergy to immunoglobulin therapy [Unknown]

NARRATIVE: CASE EVENT DATE: 20191025
